FAERS Safety Report 5454640-1 (Version None)
Quarter: 2007Q3

REPORT INFORMATION
  Report Type: 
  Country: None (occurrence: None)
  Receive Date: 20070917
  Receipt Date: 20060711
  Transmission Date: 20080115
  Serious: No
  Sender: FDA-Public Use
  Company Number: US-ASTRAZENECA-2006UW14295

PATIENT
  Age: 60 Year
  Sex: Male

DRUGS (1)
  1. SEROQUEL [Suspect]
     Dosage: 50 TO 100 MG
     Route: 048
     Dates: start: 20060201

REACTIONS (2)
  - FACE OEDEMA [None]
  - HYPOAESTHESIA [None]
